FAERS Safety Report 23067575 (Version 1)
Quarter: 2023Q4

REPORT INFORMATION
  Report Type: Spontaneous
  Country: US (occurrence: US)
  Receive Date: 20231016
  Receipt Date: 20231016
  Transmission Date: 20240109
  Serious: Yes (Other)
  Sender: FDA-Public Use
  Company Number: US-TAKEDA-2023TUS096605

PATIENT
  Age: 65 Year
  Sex: Female

DRUGS (10)
  1. MARIBAVIR [Suspect]
     Active Substance: MARIBAVIR
     Indication: Cytomegalovirus infection
     Dosage: UNK
     Route: 048
  2. EVEROLIMUS [Concomitant]
     Active Substance: EVEROLIMUS
     Dosage: UNK
     Route: 065
  3. TACROLIMUS [Concomitant]
     Active Substance: TACROLIMUS
     Dosage: UNK
     Route: 065
  4. PREDNISONE [Concomitant]
     Active Substance: PREDNISONE
     Dosage: UNK
     Route: 065
  5. GANCICLOVIR [Concomitant]
     Active Substance: GANCICLOVIR
     Indication: Cytomegalovirus infection
     Dosage: UNK
     Route: 042
  6. FOSCARNET [Concomitant]
     Active Substance: FOSCARNET
     Indication: Cytomegalovirus infection
     Dosage: UNK
     Route: 065
  7. LEFLUNOMIDE [Concomitant]
     Active Substance: LEFLUNOMIDE
     Indication: Cytomegalovirus infection
     Dosage: UNK
     Route: 065
  8. CALCIUM GLUCONATE [Concomitant]
     Active Substance: CALCIUM GLUCONATE
     Dosage: UNK
     Route: 042
  9. CALCIUM ACETATE [Concomitant]
     Active Substance: CALCIUM ACETATE
     Dosage: UNK
     Route: 065
  10. LETERMOVIR [Concomitant]
     Active Substance: LETERMOVIR
     Dosage: UNK
     Route: 065

REACTIONS (1)
  - Drug resistance [Unknown]
